FAERS Safety Report 17456206 (Version 3)
Quarter: 2020Q2

REPORT INFORMATION
  Report Type: Spontaneous
  Country: IL (occurrence: IL)
  Receive Date: 20200225
  Receipt Date: 20200403
  Transmission Date: 20200713
  Serious: Yes (Hospitalization)
  Sender: FDA-Public Use
  Company Number: IL-JNJFOC-20200230606

PATIENT
  Age: 83 Year
  Sex: Female

DRUGS (1)
  1. RIVAROXABAN [Suspect]
     Active Substance: RIVAROXABAN
     Indication: CARDIAC FIBRILLATION
     Dosage: UNK
     Route: 048
     Dates: start: 2018, end: 202002

REACTIONS (2)
  - Transient ischaemic attack [Recovered/Resolved]
  - Drug ineffective [Not Recovered/Not Resolved]

NARRATIVE: CASE EVENT DATE: 202002
